FAERS Safety Report 23266133 (Version 1)
Quarter: 2023Q4

REPORT INFORMATION
  Report Type: Spontaneous
  Country: CH (occurrence: CH)
  Receive Date: 20231206
  Receipt Date: 20231206
  Transmission Date: 20240110
  Serious: Yes (Hospitalization)
  Sender: FDA-Public Use
  Company Number: CH-AMGEN-CHESP2023212882

PATIENT
  Age: 37 Year
  Sex: Female

DRUGS (1)
  1. ADALIMUMAB [Suspect]
     Active Substance: ADALIMUMAB\ISOPROPYL ALCOHOL
     Indication: Crohn^s disease
     Dosage: UNK
     Route: 065

REACTIONS (4)
  - Cor pulmonale [Unknown]
  - Pulmonary hypertension [Recovered/Resolved]
  - Pulmonary tumour thrombotic microangiopathy [Unknown]
  - Adenocarcinoma gastric [Unknown]
